FAERS Safety Report 12457194 (Version 2)
Quarter: 2016Q2

REPORT INFORMATION
  Report Type: Spontaneous
  Country: US (occurrence: US)
  Receive Date: 20160610
  Receipt Date: 20160610
  Transmission Date: 20160815
  Serious: No
  Sender: FDA-Public Use
  Company Number: US-CARDINAL HEALTH 414, LLC-1053686

PATIENT
  Age: 89 Year
  Sex: Male

DRUGS (2)
  1. TECHNETIUM TC-99M SESTAMIBI KIT [Suspect]
     Active Substance: TECHNETIUM TC-99M SESTAMIBI
     Indication: SCAN MYOCARDIAL PERFUSION
     Route: 040
     Dates: start: 20160112, end: 20160112
  2. LEXISCAN [Concomitant]
     Active Substance: REGADENOSON
     Route: 042
     Dates: start: 20160112, end: 20160112

REACTIONS (5)
  - Dyspnoea [Recovered/Resolved]
  - Anxiety [Recovered/Resolved]
  - Tremor [Recovered/Resolved]
  - Sensation of foreign body [Recovered/Resolved]
  - Respiratory disorder [Recovered/Resolved]

NARRATIVE: CASE EVENT DATE: 20160112
